FAERS Safety Report 5791838-7 (Version None)
Quarter: 2008Q2

REPORT INFORMATION
  Report Type: 
  Country: None (occurrence: None)
  Receive Date: 20080626
  Receipt Date: 20080418
  Transmission Date: 20081010
  Serious: No
  Sender: FDA-Public Use
  Company Number: A0714574A

PATIENT
  Age: 35 Year
  Sex: Female

DRUGS (1)
  1. ALLI [Suspect]

REACTIONS (3)
  - BLOOD PRESSURE INCREASED [None]
  - BRONCHITIS [None]
  - PHARMACEUTICAL PRODUCT COMPLAINT [None]
